APPROVED DRUG PRODUCT: CEFPROZIL
Active Ingredient: CEFPROZIL
Strength: 250MG/5ML
Dosage Form/Route: FOR SUSPENSION;ORAL
Application: A065351 | Product #002
Applicant: APOTEX INC
Approved: Feb 29, 2012 | RLD: No | RS: No | Type: DISCN